FAERS Safety Report 15310212 (Version 1)
Quarter: 2018Q3

REPORT INFORMATION
  Report Type: Report from Study
  Country: JP (occurrence: JP)
  Receive Date: 20180823
  Receipt Date: 20180823
  Transmission Date: 20181010
  Serious: Yes (Hospitalization)
  Sender: FDA-Public Use
  Company Number: JP-JT-EVA201802284KERYXP-001

PATIENT
  Age: 73 Year
  Sex: Female
  Weight: 65 kg

DRUGS (15)
  1. LUPRAC [Concomitant]
     Active Substance: TORSEMIDE
     Dosage: 4 MG, QD
     Route: 048
  2. ARGAMATE [Concomitant]
     Active Substance: CALCIUM POLYSTYRENE SULFONATE
     Dosage: 25 G, QD
     Route: 048
     Dates: start: 20180220
  3. FUROSEMIDE. [Concomitant]
     Active Substance: FUROSEMIDE
     Dosage: 20 MG, QD
     Route: 048
  4. SPIRONOLACTONE. [Concomitant]
     Active Substance: SPIRONOLACTONE
     Dosage: 12.5 MG, QD
     Route: 048
     Dates: start: 20180127
  5. RIONA [Suspect]
     Active Substance: FERRIC CITRATE ANHYDROUS
     Indication: HYPERPHOSPHATAEMIA
     Dosage: 750 MG, QD
     Route: 048
     Dates: start: 20170926
  6. EQUA [Concomitant]
     Active Substance: VILDAGLIPTIN
     Dosage: 50 MG, QD
     Route: 048
  7. CRESTOR OD [Concomitant]
     Active Substance: ROSUVASTATIN CALCIUM
     Dosage: 2.5 MG, QD
     Route: 048
  8. AMLODIPINE [Concomitant]
     Active Substance: AMLODIPINE BESYLATE
     Dosage: 5 MG, QD
     Route: 048
  9. NIFEDIPINE. [Concomitant]
     Active Substance: NIFEDIPINE
     Dosage: 20 MG, QD
     Route: 048
  10. SAMSCA [Concomitant]
     Active Substance: TOLVAPTAN
     Dosage: 7.5 MG, QD
     Route: 048
     Dates: start: 20180126
  11. CALCITRIOL. [Concomitant]
     Active Substance: CALCITRIOL
     Indication: HYPERPARATHYROIDISM SECONDARY
     Dosage: 0.25 MICRO?G, QD
     Route: 048
     Dates: start: 20170911
  12. MIRCERA [Concomitant]
     Active Substance: METHOXY POLYETHYLENE GLYCOL-EPOETIN BETA
     Indication: NEPHROGENIC ANAEMIA
     Dosage: 50 MICRO?G, 5 DOSES IN 3 MONTHS
     Route: 065
  13. MIRCERA [Concomitant]
     Active Substance: METHOXY POLYETHYLENE GLYCOL-EPOETIN BETA
     Dosage: 50 MICRO?G, Q3MO
     Route: 065
  14. TAKECAB [Concomitant]
     Active Substance: VONOPRAZAN FUMURATE
     Indication: HYPERCHLORHYDRIA
     Dosage: 10 MG, QD
     Route: 048
     Dates: start: 20171031
  15. GLUFAST OD [Concomitant]
     Dosage: 10 MG, QD
     Route: 048

REACTIONS (3)
  - Adverse event [Unknown]
  - Peritonitis [Recovered/Resolved]
  - Device related infection [Recovering/Resolving]

NARRATIVE: CASE EVENT DATE: 20171225
